FAERS Safety Report 9484669 (Version 9)
Quarter: 2014Q1

REPORT INFORMATION
  Report Type: Report from Study
  Country: US (occurrence: US)
  Receive Date: 20130828
  Receipt Date: 20140114
  Transmission Date: 20141002
  Serious: Yes (Life-Threatening, Hospitalization, Other)
  Sender: FDA-Public Use
  Company Number: US-ACTELION-A-NJ2013-87721

PATIENT
  Age: 58 Year
  Sex: Female

DRUGS (14)
  1. TRACLEER [Suspect]
     Indication: PULMONARY ARTERIAL HYPERTENSION
     Dosage: 125 MG, BID
     Route: 048
     Dates: start: 201211
  2. TRACLEER [Suspect]
     Dosage: 62.5 MG BID
     Route: 048
     Dates: start: 2011, end: 201111
  3. VENTAVIS [Suspect]
     Indication: PULMONARY ARTERIAL HYPERTENSION
     Dosage: 5 MCG, 5 XS DAILY
     Route: 055
  4. PLAVIX [Concomitant]
     Dosage: 75 MG, UNK
  5. DUONEB [Concomitant]
     Dosage: 0.5 MG, UNK
  6. DUONEB [Concomitant]
     Dosage: 3 MG, UNK
  7. ASPIRIN [Concomitant]
  8. LIPITOR [Concomitant]
  9. COLACE [Concomitant]
  10. FOLIC ACID [Concomitant]
     Dosage: 1 MG, UNK
  11. HUMALOG [Concomitant]
  12. LANTUS [Concomitant]
  13. METOPROLOL SUCCINATE [Concomitant]
  14. AMITIZA [Concomitant]

REACTIONS (17)
  - Sleep apnoea syndrome [Recovering/Resolving]
  - Syncope [Not Recovered/Not Resolved]
  - Bradycardia [Recovering/Resolving]
  - Cardiac arrest [Recovering/Resolving]
  - Cardiac enzymes increased [Recovering/Resolving]
  - Chest pain [Unknown]
  - Fatigue [Recovering/Resolving]
  - Hypotension [Recovering/Resolving]
  - Renal failure [Not Recovered/Not Resolved]
  - Haemodialysis [Unknown]
  - Haemoptysis [Recovering/Resolving]
  - Dyspnoea [Recovering/Resolving]
  - Drug dose omission [Unknown]
  - Nasopharyngitis [Recovered/Resolved]
  - Oedema peripheral [Not Recovered/Not Resolved]
  - Weight increased [Recovering/Resolving]
  - Weight decreased [Unknown]
